FAERS Safety Report 10079280 (Version 3)
Quarter: 2014Q2

REPORT INFORMATION
  Report Type: Spontaneous
  Country: US (occurrence: US)
  Receive Date: 20140415
  Receipt Date: 20140515
  Transmission Date: 20141212
  Serious: Yes (Death, Hospitalization, Other)
  Sender: FDA-Public Use
  Company Number: US-BAXTER-2014BAX018157

PATIENT
  Sex: Male

DRUGS (2)
  1. DIANEAL LOW CALCIUM [Suspect]
     Indication: RENAL FAILURE CHRONIC
     Route: 033
     Dates: end: 20140409
  2. DIANEAL LOW CALCIUM [Suspect]
     Indication: RENAL FAILURE CHRONIC
     Route: 033
     Dates: end: 20140409

REACTIONS (7)
  - Death [Fatal]
  - Cerebrovascular accident [Not Recovered/Not Resolved]
  - Disease complication [Not Recovered/Not Resolved]
  - Infection [Not Recovered/Not Resolved]
  - Sepsis [Not Recovered/Not Resolved]
  - Convulsion [Recovered/Resolved]
  - Bloody peritoneal effluent [Unknown]
